FAERS Safety Report 5840399-2 (Version None)
Quarter: 2008Q3

REPORT INFORMATION
  Report Type: 
  Country: None (occurrence: None)
  Receive Date: 20080807
  Receipt Date: 20080723
  Transmission Date: 20090109
  Serious: Yes (Hospitalization)
  Sender: FDA-Public Use
  Company Number: APP200800700

PATIENT
  Age: 69 Year
  Sex: Female
  Weight: 64.8644 kg

DRUGS (7)
  1. MESNA [Suspect]
     Indication: CYSTITIS HAEMORRHAGIC
     Dosage: 7400 MG, OVER 24 HOURS, INTRAVENOUS DRIP
     Route: 041
     Dates: start: 20080722, end: 20080723
  2. MESNA [Suspect]
     Indication: PROPHYLAXIS
     Dosage: 7400 MG, OVER 24 HOURS, INTRAVENOUS DRIP
     Route: 041
     Dates: start: 20080722, end: 20080723
  3. IFOSFAMIDE [Suspect]
     Indication: LYMPHOMA
     Dosage: 7400 MG, OVER 24 HOURS; INTRAVENOUS DRIP
     Route: 041
     Dates: start: 20080722, end: 20080723
  4. CARBOPLATIN [Concomitant]
  5. ETOPOSIDE [Concomitant]
  6. ZOFRAN [Concomitant]
  7. DECADRON [Concomitant]

REACTIONS (3)
  - CHILLS [None]
  - HYPERSENSITIVITY [None]
  - PYREXIA [None]
